FAERS Safety Report 15359597 (Version 1)
Quarter: 2018Q3

REPORT INFORMATION
  Report Type: Spontaneous
  Country: US (occurrence: US)
  Receive Date: 20180907
  Receipt Date: 20180907
  Transmission Date: 20181010
  Serious: No
  Sender: FDA-Public Use
  Company Number: US-ASTRAZENECA-2018SF11252

PATIENT
  Age: 23949 Day
  Sex: Male

DRUGS (4)
  1. ESOMEPRAZOLE MAGNESIUM. [Suspect]
     Active Substance: ESOMEPRAZOLE MAGNESIUM
     Indication: GASTROOESOPHAGEAL REFLUX DISEASE
     Route: 048
     Dates: start: 20180209
  2. GENERICCELEBREX [Concomitant]
     Indication: ARTHRITIS
     Route: 048
  3. ESOMEPRAZOLE MAGNESIUM. [Suspect]
     Active Substance: ESOMEPRAZOLE MAGNESIUM
     Indication: GASTROOESOPHAGEAL REFLUX DISEASE
     Route: 048
     Dates: start: 20180216
  4. ABILIFY [Concomitant]
     Active Substance: ARIPIPRAZOLE
     Indication: MAJOR DEPRESSION
     Route: 048

REACTIONS (4)
  - Arthritis [Unknown]
  - Product quality issue [Not Recovered/Not Resolved]
  - Major depression [Unknown]
  - Product use issue [Unknown]

NARRATIVE: CASE EVENT DATE: 20180701
